FAERS Safety Report 9959819 (Version 2)
Quarter: 2014Q2

REPORT INFORMATION
  Report Type: Spontaneous
  Country: US (occurrence: None)
  Receive Date: 20140228
  Receipt Date: 20140415
  Transmission Date: 20141212
  Serious: Yes (Other)
  Sender: FDA-Public Use
  Company Number: 2014-US-002088

PATIENT
  Age: 53 Year
  Sex: Female

DRUGS (3)
  1. XYREM [Suspect]
     Indication: CATAPLEXY
     Dosage: DOSE ADJUSTMENTS, ORAL
     Route: 048
     Dates: start: 200504
  2. XYREM [Suspect]
     Indication: NARCOLEPSY
     Dosage: DOSE ADJUSTMENTS, ORAL
     Route: 048
     Dates: start: 200504
  3. NORTRIPTYLINE (NORTRIPTYLINE HYDROCHLORIDE) [Concomitant]

REACTIONS (5)
  - Pancreatitis chronic [None]
  - Condition aggravated [None]
  - Decreased appetite [None]
  - Pain [None]
  - Abnormal dreams [None]
